FAERS Safety Report 23632636 (Version 1)
Quarter: 2024Q1

REPORT INFORMATION
  Report Type: Spontaneous
  Country: US (occurrence: US)
  Receive Date: 20240314
  Receipt Date: 20240314
  Transmission Date: 20240409
  Serious: Yes (Other)
  Sender: FDA-Public Use
  Company Number: US-SK LIFE SCIENCE, INC-SKPVG-2024-000405

PATIENT

DRUGS (3)
  1. XCOPRI [Suspect]
     Active Substance: CENOBAMATE
     Indication: Epilepsy
     Dosage: UNK
     Route: 065
  2. XCOPRI [Suspect]
     Active Substance: CENOBAMATE
     Dosage: 200 UNK
     Route: 065
     Dates: start: 20230405
  3. CLOBAZAM [Concomitant]
     Active Substance: CLOBAZAM
     Indication: Epilepsy
     Dosage: 10 UNK
     Route: 065
     Dates: start: 20230405, end: 20230510

REACTIONS (5)
  - Abortion spontaneous [Recovered/Resolved]
  - Maternal use of illicit drugs [Recovered/Resolved]
  - Maternal alcohol use [Recovered/Resolved]
  - Maternal exposure during pregnancy [Recovered/Resolved]
  - Tobacco user [Recovered/Resolved]

NARRATIVE: CASE EVENT DATE: 20230405
